FAERS Safety Report 9523458 (Version 9)
Quarter: 2014Q2

REPORT INFORMATION
  Report Type: Report from Study
  Country: IE (occurrence: IE)
  Receive Date: 20130913
  Receipt Date: 20140522
  Transmission Date: 20141212
  Serious: Yes (Life-Threatening, Hospitalization)
  Sender: FDA-Public Use
  Company Number: IE-B.I. PHARMACEUTICALS,INC./RIDGEFIELD-2013-BI-24408BI

PATIENT
  Age: 70 Year
  Sex: Female
  Weight: 54 kg

DRUGS (22)
  1. BIBW 2992 [Suspect]
     Indication: LUNG ADENOCARCINOMA METASTATIC
     Dosage: 40 MG
     Route: 048
     Dates: start: 20130606, end: 20130627
  2. BIBW 2992 [Suspect]
     Dosage: 30 MG
     Route: 048
     Dates: start: 20130715, end: 20130808
  3. MST [Concomitant]
     Indication: PAIN
     Dosage: 20 MG
     Route: 048
     Dates: start: 201304
  4. OROMORPH [Concomitant]
     Indication: PAIN
     Dosage: 20 MG
     Route: 048
     Dates: start: 201304
  5. LACTULOSE [Concomitant]
     Indication: CONSTIPATION PROPHYLAXIS
     Dosage: 45 ML
     Route: 048
     Dates: start: 201304
  6. EXFORGE [Concomitant]
     Indication: HYPERTENSION
     Dosage: 10/160 MG
     Route: 048
     Dates: start: 2003, end: 20130801
  7. MAXALON [Concomitant]
     Indication: NAUSEA
     Dosage: 20-40MG
     Route: 048
     Dates: start: 201304
  8. MAXALON [Concomitant]
     Indication: VOMITING
  9. ATECOR [Concomitant]
     Indication: HYPERTENSION
     Dosage: 100 MG
     Route: 048
     Dates: start: 2008
  10. IMODIUM [Concomitant]
     Indication: DIARRHOEA
     Dosage: 2-4MG
     Route: 048
     Dates: start: 20130624
  11. VALOID [Concomitant]
     Indication: NAUSEA
     Dosage: 150 MG
     Route: 048
     Dates: start: 20130628
  12. VALOID [Concomitant]
     Indication: VOMITING
  13. LANSOPRAZOLE [Concomitant]
     Indication: NAUSEA
     Dosage: 30 MG
     Route: 048
     Dates: start: 20130629
  14. LANSOPRAZOLE [Concomitant]
     Indication: VOMITING
  15. LOMOTIL [Concomitant]
     Indication: DIARRHOEA
     Dosage: DAILY DOSE: 1- 2 TABS
     Route: 048
     Dates: start: 20130628
  16. ZOMETA [Concomitant]
     Indication: METASTASES TO BONE
     Dosage: 0.1333 MG
     Route: 042
     Dates: start: 20130426
  17. DIOVAN [Concomitant]
     Indication: HYPERTENSION
     Dosage: 80 MG
     Route: 048
     Dates: start: 20130802
  18. ROZEX [Concomitant]
     Indication: PROPHYLAXIS
     Dosage: APPLICATION
     Route: 061
     Dates: start: 20130615
  19. E45 CREAM [Concomitant]
     Indication: PROPHYLAXIS
     Dosage: DAILY DOSE: 2 APPLICATIONS
     Route: 061
     Dates: start: 20130606
  20. SILCOCKS BASE [Concomitant]
     Indication: PROPHYLAXIS
     Dosage: 2 APPLICATIONS
     Route: 061
     Dates: start: 20130606
  21. BIOEXTRA GEL [Concomitant]
     Indication: PROPHYLAXIS
     Dosage: 3 ML
     Route: 061
     Dates: start: 20130628
  22. KIN [Concomitant]
     Indication: PROPHYLAXIS
     Dosage: 30 ML
     Route: 061
     Dates: start: 20130628

REACTIONS (12)
  - Renal failure acute [Recovered/Resolved]
  - Diarrhoea [Recovered/Resolved]
  - Clostridium difficile infection [Recovered/Resolved]
  - Infectious colitis [Recovered/Resolved]
  - Vomiting [Recovered/Resolved]
  - Decreased appetite [Recovered/Resolved]
  - Nausea [Recovered/Resolved]
  - Blood creatinine increased [Recovered/Resolved]
  - Dehydration [Recovered/Resolved]
  - Confusional state [Recovered/Resolved]
  - Fatigue [Not Recovered/Not Resolved]
  - Hypotension [Recovered/Resolved]
